FAERS Safety Report 23831379 (Version 1)
Quarter: 2024Q2

REPORT INFORMATION
  Report Type: Report from Study
  Country: DE (occurrence: DE)
  Receive Date: 20240508
  Receipt Date: 20240508
  Transmission Date: 20240717
  Serious: Yes (Other)
  Sender: FDA-Public Use
  Company Number: DE-MYLANLABS-2023M1062649

PATIENT

DRUGS (3)
  1. HULIO [Suspect]
     Active Substance: ADALIMUMAB-FKJP
     Indication: Product used for unknown indication
     Dosage: 40 MILLIGRAM, Q2W , AS DIRECTED
     Route: 065
     Dates: start: 20200428
  2. ETORICOXIB [Suspect]
     Active Substance: ETORICOXIB
     Indication: Spinal osteoarthritis
     Dosage: 90 MG, QW
     Route: 065
     Dates: start: 20200325
  3. ETORICOXIB [Suspect]
     Active Substance: ETORICOXIB
     Indication: Psoriatic arthropathy

REACTIONS (2)
  - Paternal exposure during pregnancy [Unknown]
  - Live birth [Recovered/Resolved]

NARRATIVE: CASE EVENT DATE: 20220128
